FAERS Safety Report 8962240 (Version 2)
Quarter: 2013Q1

REPORT INFORMATION
  Report Type: Spontaneous
  Country: US (occurrence: US)
  Receive Date: 20121211
  Receipt Date: 20130207
  Transmission Date: 20140127
  Serious: No
  Sender: FDA-Public Use
  Company Number: US-009507513-1212USA002355

PATIENT
  Sex: Female
  Weight: 82.54 kg

DRUGS (5)
  1. MIRALAX [Suspect]
     Indication: CONSTIPATION
     Dosage: 17 G, QD
     Route: 048
     Dates: start: 201209, end: 20121007
  2. MIRALAX [Suspect]
     Indication: MEDICAL OBSERVATION
  3. CLARITIN [Concomitant]
     Indication: SEASONAL ALLERGY
     Dosage: UNK, UNKNOWN
  4. IBUPROFEN [Concomitant]
     Indication: PAIN
     Dosage: UNK, UNKNOWN
  5. IBUPROFEN [Concomitant]
     Indication: HEADACHE

REACTIONS (4)
  - Muscle spasms [Not Recovered/Not Resolved]
  - Abdominal distension [Not Recovered/Not Resolved]
  - Abdominal pain upper [Not Recovered/Not Resolved]
  - Incorrect drug administration duration [Unknown]
